FAERS Safety Report 8042708-5 (Version None)
Quarter: 2012Q1

REPORT INFORMATION
  Report Type: 
  Country: None (occurrence: None)
  Receive Date: 20120112
  Receipt Date: 20120104
  Transmission Date: 20120608
  Serious: Yes (Other)
  Sender: FDA-Public Use
  Company Number: US-ACTELION-A-US2010-41237

PATIENT

DRUGS (2)
  1. REVATIO [Concomitant]
  2. TRACLEER [Suspect]
     Indication: PULMONARY ARTERIAL HYPERTENSION
     Dosage: UNK
     Route: 048
     Dates: start: 20100902

REACTIONS (5)
  - EYE SWELLING [None]
  - OEDEMA PERIPHERAL [None]
  - OCULAR ICTERUS [None]
  - FALL [None]
  - ABDOMINAL DISTENSION [None]
